FAERS Safety Report 4534019-7 (Version None)
Quarter: 2004Q4

REPORT INFORMATION
  Report Type: 
  Country: None (occurrence: None)
  Receive Date: 20041221
  Receipt Date: 20041221
  Transmission Date: 20050328
  Serious: No
  Sender: FDA-Public Use
  Company Number: None

PATIENT
  Age: 89 Year
  Sex: Female

DRUGS (1)
  1. POLYETHYLENE GLYCOL 3350 PWD 527G; [Suspect]
     Indication: CONSTIPATION
     Dosage: MIX AND TAKE 1 TABLESPOONFUL IN 8 OUNCES OF WATER DAILY
     Dates: start: 20041124

REACTIONS (2)
  - DYSPEPSIA [None]
  - PHARMACEUTICAL PRODUCT COMPLAINT [None]
